FAERS Safety Report 14709115 (Version 1)
Quarter: 2018Q2

REPORT INFORMATION
  Report Type: Spontaneous
  Country: RO (occurrence: RO)
  Receive Date: 20180403
  Receipt Date: 20180403
  Transmission Date: 20180711
  Serious: Yes (Death)
  Sender: FDA-Public Use
  Company Number: RO-TEVA-2018-RO-874970

PATIENT
  Age: 61 Year
  Sex: Female
  Weight: 93 kg

DRUGS (15)
  1. CEFTAMIL [Suspect]
     Active Substance: CEFTAZIDIME
     Indication: PRODUCT USED FOR UNKNOWN INDICATION
     Route: 042
     Dates: end: 20180113
  2. FOLINIC ACID [Suspect]
     Active Substance: LEUCOVORIN
     Indication: PRODUCT USED FOR UNKNOWN INDICATION
     Dosage: HYPER CVAD PROTOCOL
     Route: 065
  3. METHYLPREDNISOLONE. [Suspect]
     Active Substance: METHYLPREDNISOLONE
     Indication: PRODUCT USED FOR UNKNOWN INDICATION
     Dosage: HYPER CVAD PROTOCOL
     Route: 065
  4. CYTOSAR [Concomitant]
     Active Substance: CYTARABINE
     Dates: start: 20180110, end: 20180111
  5. FILGRASTIM [Concomitant]
     Active Substance: FILGRASTIM
  6. METHOTREXATE. [Suspect]
     Active Substance: METHOTREXATE
     Indication: PRODUCT USED FOR UNKNOWN INDICATION
     Dosage: HYPER CVAD PROTOCOL
     Route: 065
  7. METHOTREXAT [Concomitant]
     Active Substance: METHOTREXATE
  8. ICLUSIG [Suspect]
     Active Substance: PONATINIB
     Indication: ACUTE LYMPHOCYTIC LEUKAEMIA
     Dosage: 45 MILLIGRAM DAILY;
     Route: 048
     Dates: start: 20170905, end: 20180112
  9. DEXAMETHASONE. [Suspect]
     Active Substance: DEXAMETHASONE
     Indication: PRODUCT USED FOR UNKNOWN INDICATION
     Dosage: HYPER CVAD PROTOCOL
     Route: 065
  10. CYCLOPHOSPHAMIDE. [Suspect]
     Active Substance: CYCLOPHOSPHAMIDE
     Indication: PRODUCT USED FOR UNKNOWN INDICATION
     Dosage: HYPER CVAD PROTOCOL
     Route: 065
  11. TARGOCID [Concomitant]
     Active Substance: TEICOPLANIN
  12. DEXAMETHASONE. [Concomitant]
     Active Substance: DEXAMETHASONE
     Dates: start: 20180109
  13. DOXORUBICIN [Suspect]
     Active Substance: DOXORUBICIN
     Indication: PRODUCT USED FOR UNKNOWN INDICATION
     Dosage: HYPER CVAD PROTOCOL
     Route: 065
  14. VINCRISTINE [Suspect]
     Active Substance: VINCRISTINE
     Indication: PRODUCT USED FOR UNKNOWN INDICATION
     Dosage: HYPER CVAD PROTOCOL
     Route: 065
  15. CYTARABINE. [Suspect]
     Active Substance: CYTARABINE
     Indication: PRODUCT USED FOR UNKNOWN INDICATION
     Dosage: HYPER CVAD PROTOCOL
     Route: 065

REACTIONS (2)
  - Dermatitis bullous [Fatal]
  - Rash [Recovering/Resolving]

NARRATIVE: CASE EVENT DATE: 20170920
